FAERS Safety Report 7251805-3 (Version None)
Quarter: 2011Q1

REPORT INFORMATION
  Report Type: 
  Country: None (occurrence: None)
  Receive Date: 20110128
  Receipt Date: 20100115
  Transmission Date: 20110831
  Serious: No
  Sender: FDA-Public Use
  Company Number: US-ABBOTT-10P-163-0620515-00

PATIENT
  Sex: Female
  Weight: 83.99 kg

DRUGS (5)
  1. TALWIN [Concomitant]
     Indication: PAIN
  2. PROZAC [Concomitant]
     Indication: PRODUCT USED FOR UNKNOWN INDICATION
     Route: 048
  3. HUMIRA [Suspect]
     Indication: RHEUMATOID ARTHRITIS
     Route: 058
     Dates: start: 20090501
  4. FEDAMINE [Concomitant]
     Indication: PRODUCT USED FOR UNKNOWN INDICATION
     Dosage: 1/2 PILL DAILY. SPELLING PROVIDED BY PT.
  5. ESTROGENIC SUBSTANCE [Concomitant]
     Indication: HYSTERECTOMY

REACTIONS (3)
  - VIRAL INFECTION [None]
  - COUGH [None]
  - SINUS DISORDER [None]
